FAERS Safety Report 19024232 (Version 2)
Quarter: 2021Q1

REPORT INFORMATION
  Report Type: Spontaneous
  Country: US (occurrence: US)
  Receive Date: 20210318
  Receipt Date: 20210325
  Transmission Date: 20210420
  Serious: No
  Sender: FDA-Public Use
  Company Number: US-TEVA-2021-US-1892788

PATIENT
  Sex: Female

DRUGS (6)
  1. PREGABALIN 200 MG [Concomitant]
     Active Substance: PREGABALIN
     Route: 048
  2. AUSTEDO [Suspect]
     Active Substance: DEUTETRABENAZINE
     Indication: TARDIVE DYSKINESIA
     Route: 048
  3. ETODOLAC 400 MG [Concomitant]
     Active Substance: ETODOLAC
     Route: 048
  4. TRAZODONE HCL 100 MG [Concomitant]
     Active Substance: TRAZODONE HYDROCHLORIDE
     Route: 048
  5. DULOXETINE HCL 60 MG [Concomitant]
     Active Substance: DULOXETINE HYDROCHLORIDE
     Route: 048
  6. ROPINIROLE HCL 1 MG [Concomitant]
     Route: 048

REACTIONS (2)
  - Pain [Unknown]
  - Sleep disorder [Unknown]
